FAERS Safety Report 9666952 (Version 1)
Quarter: 2013Q4

REPORT INFORMATION
  Report Type: Spontaneous
  Country: US (occurrence: US)
  Receive Date: 20131104
  Receipt Date: 20131104
  Transmission Date: 20140711
  Serious: No
  Sender: FDA-Public Use
  Company Number: US-BIOGENIDEC-2013BI088550

PATIENT
  Sex: Female

DRUGS (10)
  1. TECFIDERA [Suspect]
     Indication: MULTIPLE SCLEROSIS
     Route: 048
     Dates: start: 20130419
  2. CITALOPRAM [Concomitant]
     Dates: start: 20130716
  3. SIMVASTATIN [Concomitant]
     Dates: start: 20130626
  4. SIMVASTATIN [Concomitant]
  5. LOSARTAN [Concomitant]
     Dates: start: 20130617
  6. LOSARTAN [Concomitant]
     Dates: start: 20110830
  7. AMLODIPINE BESYLATE [Concomitant]
     Dates: start: 20110730
  8. AMLODIPINE BESYLATE [Concomitant]
  9. REBIF [Concomitant]
  10. IBUPROFEN [Concomitant]

REACTIONS (3)
  - Incontinence [Not Recovered/Not Resolved]
  - Flushing [Not Recovered/Not Resolved]
  - Diarrhoea [Not Recovered/Not Resolved]
